FAERS Safety Report 18598322 (Version 1)
Quarter: 2020Q4

REPORT INFORMATION
  Report Type: Spontaneous
  Country: IT (occurrence: IT)
  Receive Date: 20201209
  Receipt Date: 20201209
  Transmission Date: 20210114
  Serious: Yes (Hospitalization)
  Sender: FDA-Public Use
  Company Number: IT-UCBSA-2020049979

PATIENT
  Age: 52 Year
  Sex: Female

DRUGS (4)
  1. XANAX [Suspect]
     Active Substance: ALPRAZOLAM
     Indication: DRUG ABUSE
     Dates: start: 20200714, end: 20200714
  2. GARDENALE [PHENOBARBITAL] [Suspect]
     Active Substance: PHENOBARBITAL
     Indication: DRUG ABUSE
     Dosage: UNK
     Dates: start: 20200714, end: 20200714
  3. TRAMADOL HYDROCHLORIDE. [Suspect]
     Active Substance: TRAMADOL HYDROCHLORIDE
     Indication: DRUG ABUSE
     Dosage: UNK
     Dates: start: 20200914, end: 20200914
  4. KEPPRA [Suspect]
     Active Substance: LEVETIRACETAM
     Indication: DRUG ABUSE
     Dosage: 750 MG
     Dates: start: 20200914, end: 20200914

REACTIONS (3)
  - Drug abuse [Recovering/Resolving]
  - Sopor [Recovering/Resolving]
  - Product use issue [Unknown]

NARRATIVE: CASE EVENT DATE: 20200914
